FAERS Safety Report 4988259-3 (Version None)
Quarter: 2006Q2

REPORT INFORMATION
  Report Type: 
  Country: None (occurrence: None)
  Receive Date: 20060425
  Receipt Date: 20060419
  Transmission Date: 20061013
  Serious: Yes (Life-Threatening, Hospitalization)
  Sender: FDA-Public Use
  Company Number: ESWYE566620APR06

PATIENT
  Sex: Female

DRUGS (1)
  1. PIPERACILLIN AND TAZOBACTAM [Suspect]
     Indication: ABDOMINAL ABSCESS
     Dates: start: 20060401, end: 20060401

REACTIONS (1)
  - COLD TYPE HAEMOLYTIC ANAEMIA [None]
